FAERS Safety Report 4339888-1 (Version None)
Quarter: 2004Q2

REPORT INFORMATION
  Report Type: 
  Country: None (occurrence: None)
  Receive Date: 20040412
  Receipt Date: 20040331
  Transmission Date: 20050107
  Serious: Yes (Hospitalization)
  Sender: FDA-Public Use
  Company Number: 04P-034-0255712-00

PATIENT
  Age: 34 Year
  Sex: Female

DRUGS (2)
  1. DEPAKOTE [Suspect]
     Indication: EPILEPSY
     Dosage: 1 IN 1 D, ORAL
     Route: 048
  2. OXCARBAZEPINE [Suspect]
     Indication: EPILEPSY
     Dosage: 1  IN 1 D, ORAL
     Route: 048

REACTIONS (1)
  - MELANOSIS [None]
